FAERS Safety Report 5703941-8 (Version None)
Quarter: 2008Q2

REPORT INFORMATION
  Report Type: 
  Country: None (occurrence: None)
  Receive Date: 20080409
  Receipt Date: 20080331
  Transmission Date: 20081010
  Serious: Yes (Other)
  Sender: FDA-Public Use
  Company Number: 066-21880-08040097

PATIENT
  Sex: Male

DRUGS (3)
  1. REVLIMID [Suspect]
     Indication: DRUG USE FOR UNKNOWN INDICATION
     Dosage: EVERY DAY, ORAL; EVERY OTHER DAY
     Route: 048
     Dates: end: 20071101
  2. REVLIMID [Suspect]
     Indication: DRUG USE FOR UNKNOWN INDICATION
     Dosage: EVERY DAY, ORAL; EVERY OTHER DAY
     Route: 048
     Dates: start: 20070427
  3. DEXAMETHASONE TAB [Concomitant]

REACTIONS (3)
  - FATIGUE [None]
  - MOBILITY DECREASED [None]
  - SOMNOLENCE [None]
